FAERS Safety Report 8819221 (Version 4)
Quarter: 2013Q2

REPORT INFORMATION
  Report Type: Spontaneous
  Country: US (occurrence: US)
  Receive Date: 20121001
  Receipt Date: 20130429
  Transmission Date: 20140414
  Serious: No
  Sender: FDA-Public Use
  Company Number: US-PFIZER INC-2012238686

PATIENT
  Age: 57 Year
  Sex: Female
  Weight: 61.2 kg

DRUGS (2)
  1. METAXALONE [Suspect]
     Indication: MUSCLE SPASMS
     Dosage: 800 MG, 1X/DAY AT BEDTIME
     Route: 048
     Dates: start: 20120831, end: 20120902
  2. VITAMIN K2- MK4 [Concomitant]
     Indication: OSTEOPOROSIS
     Dosage: 1 TABLET, 5-6 TIMES PER WEEK

REACTIONS (3)
  - Muscle swelling [Recovered/Resolved]
  - Myalgia [Recovered/Resolved]
  - Insomnia [Recovered/Resolved]
